FAERS Safety Report 8013959-0 (Version None)
Quarter: 2011Q4

REPORT INFORMATION
  Report Type: 
  Country: None (occurrence: None)
  Receive Date: 20111229
  Receipt Date: 20111219
  Transmission Date: 20120403
  Serious: Yes (Other)
  Sender: FDA-Public Use
  Company Number: IT-PFIZER INC-2011287361

PATIENT
  Age: 48 Year
  Sex: Male
  Weight: 65 kg

DRUGS (4)
  1. BETAMETHASONE SODIUM PHOSPHATE [Concomitant]
     Indication: SCIATICA
     Dosage: 1.5 MG, 1X/DAY
     Route: 048
     Dates: start: 20111110, end: 20111118
  2. CRIZOTINIB [Suspect]
     Indication: NON-SMALL CELL LUNG CANCER
     Dosage: 250 MG, 2X/DAY
     Route: 048
     Dates: start: 20110204, end: 20111122
  3. IBRUPROFEN [Concomitant]
     Indication: SCIATICA
     Dosage: 600 MG, 1X/DAY
     Route: 048
     Dates: start: 20111113
  4. METOCLOPRAMIDE HYDROCHLORIDE [Concomitant]
     Indication: PROPHYLAXIS OF NAUSEA AND VOMITING
     Dosage: 10 MG, 3X/DAY
     Route: 048
     Dates: start: 20110601

REACTIONS (1)
  - PANCREATIC ATROPHY [None]
